FAERS Safety Report 4635437-9 (Version None)
Quarter: 2005Q2

REPORT INFORMATION
  Report Type: 
  Country: None (occurrence: None)
  Receive Date: 20050413
  Receipt Date: 20050406
  Transmission Date: 20051028
  Serious: Yes (Hospitalization)
  Sender: FDA-Public Use
  Company Number: 05-04-0557

PATIENT
  Age: 51 Year
  Sex: Female
  Weight: 58.0604 kg

DRUGS (1)
  1. CLOZAPINE [Suspect]
     Indication: SCHIZOPHRENIA, PARANOID TYPE
     Dosage: 200MG QHS ORAL
     Route: 048
     Dates: start: 20000201, end: 20050201

REACTIONS (1)
  - ELECTROLYTE IMBALANCE [None]
